FAERS Safety Report 22397038 (Version 1)
Quarter: 2023Q2

REPORT INFORMATION
  Report Type: Spontaneous
  Country: US (occurrence: US)
  Receive Date: 20230602
  Receipt Date: 20230602
  Transmission Date: 20230721
  Serious: No
  Sender: FDA-Public Use
  Company Number: US-009507513-2305USA002730

PATIENT
  Age: 79 Year
  Sex: Female

DRUGS (2)
  1. KEYTRUDA [Suspect]
     Active Substance: PEMBROLIZUMAB
     Indication: Uterine cancer
     Dosage: UNK
     Dates: start: 20230424
  2. LENVATINIB MESYLATE [Suspect]
     Active Substance: LENVATINIB MESYLATE
     Indication: Uterine cancer
     Dosage: 14 MILLIGRAM, QD
     Route: 048
     Dates: start: 20230423

REACTIONS (2)
  - Diarrhoea [Unknown]
  - Product use issue [Unknown]

NARRATIVE: CASE EVENT DATE: 20230423
